FAERS Safety Report 10699961 (Version 2)
Quarter: 2014Q4

REPORT INFORMATION
  Report Type: Other
  Country: IT (occurrence: IT)
  Receive Date: 20141031
  Receipt Date: 20141031
  Transmission Date: 20150529
  Serious: Yes (Hospitalization, Other)
  Sender: FDA-Public Use
  Company Number: IT-APOTEX-2014AP003722

PATIENT
  Age: 23 Year
  Sex: Male

DRUGS (1)
  1. LEVETIRACETAM. [Suspect]
     Active Substance: LEVETIRACETAM
     Indication: EPILEPSY
     Dosage: 250 MG, Q.AM
     Route: 048
     Dates: start: 20140617, end: 20140617

REACTIONS (2)
  - Asthenia [Recovered/Resolved with Sequelae]
  - Road traffic accident [Recovered/Resolved with Sequelae]

NARRATIVE: CASE EVENT DATE: 20140617
